FAERS Safety Report 6221620-8 (Version None)
Quarter: 2009Q2

REPORT INFORMATION
  Report Type: 
  Country: None (occurrence: None)
  Receive Date: 20090608
  Receipt Date: 20090526
  Transmission Date: 20091009
  Serious: Yes (Hospitalization, Other)
  Sender: FDA-Public Use
  Company Number: PL-WYE-H09400009

PATIENT
  Age: 61 Year
  Sex: Female

DRUGS (9)
  1. AVASTIN [Suspect]
     Indication: RENAL CELL CARCINOMA
     Dosage: 735 MG 1X PER 1 WK; INTRAVENOUS
     Route: 042
     Dates: start: 20090330
  2. ROFERON, CONTROL FOR CCI-779 (INTERFERON ALFA, CONTROL FOR CCI-779, IN [Suspect]
     Indication: RENAL CELL CARCINOMA
     Dosage: 9 MU THREE TIMES WEEKLY; SC
     Route: 058
     Dates: start: 20090330
  3. BISOPROLOL FUMARATE [Concomitant]
  4. TORSEMIDE [Concomitant]
  5. ASPIRIN [Concomitant]
  6. OMEPRAZOLE [Concomitant]
  7. ALLOPURINOL [Concomitant]
  8. VERAPAMIL [Concomitant]
  9. GLYCERYL TRINITRATE (GLYCERYL TRINITRATE) [Concomitant]

REACTIONS (2)
  - HEADACHE [None]
  - VERTIGO [None]
